FAERS Safety Report 7004244-4 (Version None)
Quarter: 2010Q3

REPORT INFORMATION
  Report Type: 
  Country: None (occurrence: None)
  Receive Date: 20100920
  Receipt Date: 20100226
  Transmission Date: 20110219
  Serious: No
  Sender: FDA-Public Use
  Company Number: US-WYE-H13884510

PATIENT
  Sex: Female
  Weight: 81.72 kg

DRUGS (8)
  1. PRISTIQ [Suspect]
     Indication: DEPRESSION
     Route: 048
     Dates: start: 20091201, end: 20100101
  2. PRISTIQ [Suspect]
     Route: 048
     Dates: start: 20100101
  3. KLONOPIN [Concomitant]
  4. ASPIRIN [Concomitant]
  5. ZOCOR [Concomitant]
  6. ELAVIL [Concomitant]
  7. BUSPAR [Concomitant]
  8. LOPRESSOR [Concomitant]

REACTIONS (1)
  - BLOOD GLUCOSE INCREASED [None]
